FAERS Safety Report 8954163 (Version 2)
Quarter: 2012Q4

REPORT INFORMATION
  Report Type: 
  Country: FR (occurrence: FR)
  Receive Date: 20121207
  Receipt Date: 20121221
  Transmission Date: 20130627
  Serious: Yes (Hospitalization)
  Sender: FDA-Public Use
  Company Number: FR-009507513-1211FRA012235

PATIENT
  Age: 76 Year
  Sex: Male
  Weight: 90 kg

DRUGS (5)
  1. ORGARAN [Suspect]
     Indication: THROMBOSIS PROPHYLAXIS
     Dosage: 6000 IU, qd
     Route: 042
     Dates: start: 20120903, end: 20120906
  2. ORGARAN [Suspect]
     Dosage: 4800 IU, qd
     Route: 042
     Dates: start: 20120908, end: 20120909
  3. ORGARAN [Suspect]
     Dosage: 2000 IU, bid
     Route: 058
     Dates: start: 20120910, end: 20120930
  4. PREVISCAN [Suspect]
     Indication: PRODUCT USED FOR UNKNOWN INDICATION
     Dosage: 20 mg, qd
     Route: 048
     Dates: start: 20120906, end: 20120910
  5. PREVISCAN [Suspect]
     Dosage: 20 mg, qd
     Route: 048
     Dates: start: 20120928, end: 20120930

REACTIONS (3)
  - Haematoma [Recovered/Resolved]
  - Overdose [Recovered/Resolved]
  - Upper gastrointestinal haemorrhage [Recovering/Resolving]
